FAERS Safety Report 14211123 (Version 1)
Quarter: 2017Q4

REPORT INFORMATION
  Report Type: Report from Study
  Country: GR (occurrence: GR)
  Receive Date: 20171121
  Receipt Date: 20171121
  Transmission Date: 20180321
  Serious: Yes (Other)
  Sender: FDA-Public Use
  Company Number: GR-GILEAD-2017-0305625

PATIENT
  Age: 47 Year
  Sex: Female

DRUGS (2)
  1. TENOFOVIR DISOPROXIL FUMARATE. [Suspect]
     Active Substance: TENOFOVIR DISOPROXIL FUMARATE
     Indication: CHRONIC HEPATITIS B
     Dosage: 245 MG, QD
     Route: 048
     Dates: start: 20120620
  2. BUPRENORPHINE. [Concomitant]
     Active Substance: BUPRENORPHINE
     Indication: PRODUCT SUBSTITUTION
     Dosage: 10 MG, QD
     Route: 048

REACTIONS (1)
  - Osteoporosis [Not Recovered/Not Resolved]
